FAERS Safety Report 7715808-4 (Version None)
Quarter: 2011Q3

REPORT INFORMATION
  Report Type: 
  Country: None (occurrence: None)
  Receive Date: 20110829
  Receipt Date: 20110829
  Transmission Date: 20111222
  Serious: No
  Sender: FDA-Public Use
  Company Number: None

PATIENT
  Age: 48 Year
  Sex: Female
  Weight: 65.77 kg

DRUGS (1)
  1. VANIQA [Suspect]
     Indication: HAIR GROWTH ABNORMAL

REACTIONS (5)
  - ALOPECIA [None]
  - PAIN [None]
  - BURNING SENSATION [None]
  - HAIR GROWTH ABNORMAL [None]
  - ERYTHEMA [None]
